FAERS Safety Report 14670186 (Version 1)
Quarter: 2018Q1

REPORT INFORMATION
  Report Type: Spontaneous
  Country: CA (occurrence: CA)
  Receive Date: 20180322
  Receipt Date: 20180322
  Transmission Date: 20180509
  Serious: Yes (Disabling, Other)
  Sender: FDA-Public Use
  Company Number: CA-BAYER-2018-051752

PATIENT
  Age: 29 Year
  Sex: Female

DRUGS (4)
  1. MIRENA [Suspect]
     Active Substance: LEVONORGESTREL
     Indication: CEREBROVASCULAR ACCIDENT PROPHYLAXIS
  2. MIRENA [Suspect]
     Active Substance: LEVONORGESTREL
     Indication: CEREBROVASCULAR ACCIDENT PROPHYLAXIS
  3. MIRENA [Suspect]
     Active Substance: LEVONORGESTREL
     Indication: MENSTRUATION IRREGULAR
     Dosage: 20 MCG/24HR, CONT
     Route: 015
  4. MIRENA [Suspect]
     Active Substance: LEVONORGESTREL
     Indication: MENSTRUATION IRREGULAR

REACTIONS (11)
  - Acne [Unknown]
  - Emotional distress [Unknown]
  - Depression [Unknown]
  - Headache [Unknown]
  - Abdominal pain [Unknown]
  - Loss of libido [Unknown]
  - Migraine with aura [Unknown]
  - Dizziness [Unknown]
  - Dyspareunia [Unknown]
  - Anxiety [Unknown]
  - Vaginal haemorrhage [Unknown]
